FAERS Safety Report 9656374 (Version 2)
Quarter: 2013Q4

REPORT INFORMATION
  Report Type: Report from Study
  Country: CA (occurrence: CA)
  Receive Date: 20131030
  Receipt Date: 20131030
  Transmission Date: 20140711
  Serious: Yes (Other)
  Sender: FDA-Public Use
  Company Number: CA-JNJFOC-20131011563

PATIENT
  Age: 39 Year
  Sex: Female
  Weight: 70.9 kg

DRUGS (1)
  1. REMICADE [Suspect]
     Indication: CROHN^S DISEASE
     Route: 042
     Dates: start: 2008

REACTIONS (3)
  - Anal fistula [Unknown]
  - Surgery [Unknown]
  - Malaise [Unknown]
